FAERS Safety Report 19655382 (Version 1)
Quarter: 2021Q3

REPORT INFORMATION
  Report Type: Report from Study
  Country: None (occurrence: PR)
  Receive Date: 20210803
  Receipt Date: 20210803
  Transmission Date: 20211014
  Serious: Yes (Other)
  Sender: FDA-Public Use
  Company Number: PR-ABBVIE-21K-131-4019233-00

PATIENT
  Age: 50 Year
  Sex: Female
  Weight: 96.25 kg

DRUGS (1)
  1. RINVOQ [Suspect]
     Active Substance: UPADACITINIB
     Indication: RHEUMATOID ARTHRITIS
     Dosage: DAILY
     Route: 048
     Dates: start: 20190923

REACTIONS (1)
  - Knee operation [Unknown]
